FAERS Safety Report 4445722-1 (Version None)
Quarter: 2004Q3

REPORT INFORMATION
  Report Type: 
  Country: None (occurrence: None)
  Receive Date: 20040903
  Receipt Date: 20040824
  Transmission Date: 20050211
  Serious: Yes (Hospitalization)
  Sender: FDA-Public Use
  Company Number: 2004-BP-07354AU

PATIENT
  Sex: Male

DRUGS (9)
  1. MOBIC [Suspect]
     Dosage: 15 MG (15 MG, 15 MG ONCE DAILY), PO
     Route: 048
     Dates: end: 20030401
  2. EFORMOTEROL [Concomitant]
  3. TERBUTALINE [Concomitant]
  4. OXAZEPAM [Concomitant]
  5. NTIRAZEPAM [Concomitant]
  6. ASPIRIN [Concomitant]
  7. TRANDOLAPRIL [Concomitant]
  8. DIGOXIN [Concomitant]
  9. OMEPRAZOLE [Concomitant]

REACTIONS (3)
  - ANGINA UNSTABLE [None]
  - DYSPNOEA [None]
  - RENAL FAILURE CHRONIC [None]
